FAERS Safety Report 8957219 (Version 2)
Quarter: 2013Q1

REPORT INFORMATION
  Report Type: Spontaneous
  Country: FI (occurrence: None)
  Receive Date: 20121130
  Receipt Date: 20121213
  Transmission Date: 20140127
  Serious: Yes (Other)
  Sender: FDA-Public Use
  Company Number: FI-1195316

PATIENT
  Age: 55 Year
  Sex: Female
  Weight: 93 kg

DRUGS (1)
  1. CIPRO HC [Suspect]
     Indication: OTITIS EXTERNA
     Dosage: (4 GTT BID OD AURICULAR (OTIC))
     Dates: start: 20121114, end: 20121115

REACTIONS (5)
  - Tympanic membrane perforation [None]
  - Ear pain [None]
  - Tinnitus [None]
  - Hearing impaired [None]
  - Dysgeusia [None]
